FAERS Safety Report 5907982-7 (Version None)
Quarter: 2008Q4

REPORT INFORMATION
  Report Type: 
  Country: None (occurrence: None)
  Receive Date: 20081003
  Receipt Date: 20080922
  Transmission Date: 20090506
  Serious: Yes (Hospitalization)
  Sender: FDA-Public Use
  Company Number: ES-PFIZER INC-2008079680

PATIENT
  Sex: Male

DRUGS (12)
  1. PREDNISONE [Suspect]
     Indication: PROSTATE CANCER
     Route: 048
     Dates: start: 20080912
  2. CP-751,871 [Suspect]
     Indication: PROSTATE CANCER
     Route: 042
     Dates: start: 20080912
  3. DOCETAXEL [Suspect]
     Indication: PROSTATE CANCER
     Route: 042
     Dates: start: 20080912
  4. LIPLAT [Concomitant]
     Route: 048
  5. CASODEX [Concomitant]
     Route: 048
  6. NAPROSYN [Concomitant]
     Route: 048
  7. DECAPEPTYL [Concomitant]
     Route: 030
  8. ASPIRIN [Concomitant]
     Route: 048
  9. DILTIAZEM HCL [Concomitant]
     Route: 048
  10. OMEPRAZOLE [Concomitant]
     Route: 048
  11. OMNIC [Concomitant]
     Route: 048
  12. PLAVIX [Concomitant]
     Route: 048

REACTIONS (2)
  - DIARRHOEA [None]
  - FEBRILE NEUTROPENIA [None]
